FAERS Safety Report 4994188-1 (Version None)
Quarter: 2006Q2

REPORT INFORMATION
  Report Type: 
  Country: None (occurrence: None)
  Receive Date: 20060503
  Receipt Date: 20060420
  Transmission Date: 20061013
  Serious: Yes (Death, Hospitalization)
  Sender: FDA-Public Use
  Company Number: HQWYE692407APR06

PATIENT
  Age: 59 Year
  Sex: Female

DRUGS (15)
  1. ARTANE [Suspect]
     Indication: PARKINSONISM
     Dosage: 4 MG 1X PER 1 DAY
     Route: 048
     Dates: start: 19940101
  2. ARTANE [Suspect]
     Indication: SCHIZOPHRENIA
     Dosage: 4 MG 1X PER 1 DAY
     Route: 048
     Dates: start: 19940101
  3. IMPROMEN (BROMPERIDOL, ) [Suspect]
     Indication: SCHIZOPHRENIA
     Dosage: 3 MG 1X PER 1 DAY
     Route: 048
     Dates: end: 20060322
  4. HALOPERIDOL [Suspect]
     Indication: SCHIZOPHRENIA
     Dosage: 4.5 MG 1X PER 1 DAY
     Route: 048
     Dates: end: 20060322
  5. VEGETAMIN [Suspect]
     Route: 048
     Dates: end: 20060322
  6. DOXAZOSIN MESYLATE [Concomitant]
  7. FOSAMAX [Concomitant]
  8. ALFAROL (ALFACALCIDOL) [Concomitant]
  9. CARVEDILOL [Concomitant]
  10. VIT K CAP [Concomitant]
  11. OSTEN (IPRIFLAVONE) [Concomitant]
  12. BLOPRESS (CANDESARTAN CILEXETIL) [Concomitant]
  13. LENDORM [Concomitant]
  14. LIPIDIL [Concomitant]
  15. NORVASC [Concomitant]

REACTIONS (10)
  - DEPRESSED LEVEL OF CONSCIOUSNESS [None]
  - DIABETIC KETOACIDOSIS [None]
  - HYPERAMYLASAEMIA [None]
  - HYPERTENSION [None]
  - NEUROLEPTIC MALIGNANT SYNDROME [None]
  - OBESITY [None]
  - OSTEOPOROSIS [None]
  - RENAL FAILURE ACUTE [None]
  - SHOCK [None]
  - SINUS TACHYCARDIA [None]
